FAERS Safety Report 4586613-5 (Version None)
Quarter: 2005Q1

REPORT INFORMATION
  Report Type: 
  Country: None (occurrence: None)
  Receive Date: 20050218
  Receipt Date: 20040713
  Transmission Date: 20050727
  Serious: No
  Sender: FDA-Public Use
  Company Number: US-BRISTOL-MYERS SQUIBB COMPANY-12639381

PATIENT
  Age: 63 Year
  Sex: Male
  Weight: 83 kg

DRUGS (6)
  1. TAXOL [Suspect]
     Indication: ADENOCARCINOMA
     Route: 042
  2. ATENOLOL [Concomitant]
     Indication: HYPERTENSION
  3. KEPPRA [Concomitant]
     Indication: CONVULSION
  4. DECADRON [Concomitant]
     Indication: COORDINATION ABNORMAL
     Dosage: TAPERING
  5. BENADRYL [Concomitant]
     Indication: PREMEDICATION
  6. TAGAMET [Concomitant]
     Indication: PREMEDICATION

REACTIONS (1)
  - INJECTION SITE REACTION [None]
